FAERS Safety Report 6671197-8 (Version None)
Quarter: 2010Q2

REPORT INFORMATION
  Report Type: 
  Country: None (occurrence: None)
  Receive Date: 20100407
  Receipt Date: 20100331
  Transmission Date: 20101027
  Serious: Yes (Death, Hospitalization, Other)
  Sender: FDA-Public Use
  Company Number: TR-ELI_LILLY_AND_COMPANY-TR201004000135

PATIENT
  Sex: Male

DRUGS (3)
  1. HUMULIN R [Suspect]
     Indication: DIABETES MELLITUS
     Dosage: 3 U, 2/D
     Route: 058
  2. HUMULIN R [Suspect]
     Dosage: 3 U, EACH NOON
     Route: 058
  3. HUMULIN N [Suspect]
     Indication: DIABETES MELLITUS
     Dosage: 3 U, EACH NIGHT
     Route: 058

REACTIONS (4)
  - CARDIAC FAILURE [None]
  - COMA [None]
  - HYPERTENSION [None]
  - VASCULAR INJURY [None]
